FAERS Safety Report 9054724 (Version 1)
Quarter: 2013Q1

REPORT INFORMATION
  Report Type: Spontaneous
  Country: ES (occurrence: ES)
  Receive Date: 20130208
  Receipt Date: 20130208
  Transmission Date: 20140127
  Serious: Yes (Hospitalization)
  Sender: FDA-Public Use
  Company Number: ES-ABBOTT-13P-144-1046314-00

PATIENT
  Age: 46 Year
  Sex: Male

DRUGS (5)
  1. KALETRA TABLETS 100/25 [Suspect]
     Indication: HIV INFECTION
     Dosage: 6 DF, TWICE A DAY
     Route: 048
     Dates: start: 20120222, end: 20120820
  2. ISENTRESS [Suspect]
     Indication: HIV INFECTION
  3. PEGINTERFERON [Suspect]
     Indication: HEPATITIS C
     Route: 058
     Dates: start: 201202
  4. REBETOL [Suspect]
     Indication: HEPATITIS C
     Route: 048
     Dates: start: 201202
  5. VICTRELIS [Suspect]
     Indication: HEPATITIS C
     Route: 048
     Dates: start: 201202

REACTIONS (3)
  - Pancytopenia [Recovered/Resolved]
  - Gastroenteritis [Recovered/Resolved]
  - Weight decreased [Recovered/Resolved]
